FAERS Safety Report 20319221 (Version 13)
Quarter: 2022Q2

REPORT INFORMATION
  Report Type: Report from Study
  Country: KR (occurrence: None)
  Receive Date: 20220110
  Receipt Date: 20220525
  Transmission Date: 20220720
  Serious: Yes (Death)
  Sender: FDA-Public Use
  Company Number: KR-Eisai Medical Research-EC-2022-106534

PATIENT
  Age: 72 Year
  Sex: Male
  Weight: 63.8 kg

DRUGS (12)
  1. LENVATINIB [Suspect]
     Active Substance: LENVATINIB
     Indication: Squamous cell carcinoma of head and neck
     Route: 048
     Dates: start: 20211215, end: 20220104
  2. PEMBROLIZUMAB [Suspect]
     Active Substance: PEMBROLIZUMAB
     Indication: Squamous cell carcinoma of head and neck
     Route: 041
     Dates: start: 20211215, end: 20211215
  3. OFLOXACIN [Concomitant]
     Active Substance: OFLOXACIN
     Dates: start: 20211115
  4. LEVOTHYROXINE SODIUM [Concomitant]
     Active Substance: LEVOTHYROXINE SODIUM
     Dates: start: 20140808
  5. ACETYLCYSTEINE [Concomitant]
     Active Substance: ACETYLCYSTEINE
     Dates: start: 20211117
  6. ENCLE [Concomitant]
     Dates: start: 20211118
  7. TERRAMYCIN OPHTHALMIC [Concomitant]
     Dates: start: 20211118
  8. LANSOPRAZOLE [Concomitant]
     Active Substance: LANSOPRAZOLE
     Dates: start: 20211130
  9. ENCOVER [Concomitant]
     Dates: start: 20211207
  10. CODEINE PHOSPHATE [Concomitant]
     Active Substance: CODEINE PHOSPHATE
     Dates: start: 20211229
  11. AMBROXOL [Concomitant]
     Active Substance: AMBROXOL
     Dates: start: 20211229
  12. CODEINE [Concomitant]
     Active Substance: CODEINE
     Dates: start: 20211229

REACTIONS (1)
  - Cardiac arrest [Fatal]

NARRATIVE: CASE EVENT DATE: 20220105
